FAERS Safety Report 21447765 (Version 2)
Quarter: 2022Q4

REPORT INFORMATION
  Report Type: Spontaneous
  Country: US (occurrence: US)
  Receive Date: 20221012
  Receipt Date: 20221109
  Transmission Date: 20230112
  Serious: Yes (Hospitalization)
  Sender: FDA-Public Use
  Company Number: US-PFIZER INC-202201221551

PATIENT
  Age: 74 Year
  Sex: Male
  Weight: 72.562 kg

DRUGS (11)
  1. VYNDAMAX [Suspect]
     Active Substance: TAFAMIDIS
     Indication: Cardiac amyloidosis
     Dosage: 61 MG, 1X/DAY
  2. XIFAXAN [Concomitant]
     Active Substance: RIFAXIMIN
     Indication: Hepatic cirrhosis
     Dosage: 150 MG, 2X/DAY
  3. MIDODRINE [Concomitant]
     Active Substance: MIDODRINE
     Dosage: 5 MG, 3X/DAY
  4. ATORVASTATIN [Concomitant]
     Active Substance: ATORVASTATIN
     Indication: Blood cholesterol abnormal
     Dosage: BED TIME
  5. SOTALOL [Concomitant]
     Active Substance: SOTALOL
     Indication: Cardiac disorder
     Dosage: 80 MG, 2X/DAY
  6. JARDIANCE [Concomitant]
     Active Substance: EMPAGLIFLOZIN
     Dosage: 10 MG, 1X/DAY
  7. OMEPRAZOLE [Concomitant]
     Active Substance: OMEPRAZOLE
     Indication: Dyspepsia
     Dosage: 20 MG, 1X/DAY
  8. MEXILETINE [Concomitant]
     Active Substance: MEXILETINE
     Indication: Cardiac disorder
     Dosage: 150 MG, 3X/DAY
  9. TRULICITY [Concomitant]
     Active Substance: DULAGLUTIDE
     Indication: Diabetes mellitus
     Dosage: 1.5 MG, WEEKLY
  10. VITAMIN B COMPLEX [Concomitant]
     Active Substance: CYANOCOBALAMIN\DEXPANTHENOL\NIACINAMIDE\PYRIDOXINE HYDROCHLORIDE\RIBOFLAVIN 5^-PHOSPHATE SODIUM\THIA
     Dosage: UNK
  11. CENTRUM SILVER [ASCORBIC ACID;CALCIUM;MINERALS NOS;RETINOL;TOCOPHERYL [Concomitant]

REACTIONS (3)
  - Hypotension [Unknown]
  - Cardiac disorder [Unknown]
  - Product dose omission issue [Unknown]
